FAERS Safety Report 8903810 (Version 2)
Quarter: 2013Q2

REPORT INFORMATION
  Report Type: Spontaneous
  Country: US (occurrence: US)
  Receive Date: 20121113
  Receipt Date: 20130513
  Transmission Date: 20140414
  Serious: No
  Sender: FDA-Public Use
  Company Number: US-009507513-1211USA004646

PATIENT
  Age: 83 Year
  Sex: Female
  Weight: 74.83 kg

DRUGS (1)
  1. LOSARTAN POTASSIUM [Suspect]
     Dosage: UNK
     Route: 048
     Dates: start: 201205, end: 201205

REACTIONS (7)
  - Syncope [Recovered/Resolved]
  - Dyspnoea [Recovered/Resolved]
  - Feeling hot [Recovered/Resolved]
  - Chest pain [Recovered/Resolved]
  - Dizziness [Recovered/Resolved]
  - Asthenia [Recovered/Resolved]
  - Nausea [Recovered/Resolved]
